FAERS Safety Report 21977378 (Version 1)
Quarter: 2023Q1

REPORT INFORMATION
  Report Type: Other
  Country: PA (occurrence: PA)
  Receive Date: 20230210
  Receipt Date: 20230210
  Transmission Date: 20230418
  Serious: Yes (Hospitalization)
  Sender: FDA-Public Use
  Company Number: PA-TOLMAR, INC.-23PA038577

PATIENT
  Sex: Male

DRUGS (1)
  1. ELIGARD [Suspect]
     Active Substance: LEUPROLIDE ACETATE
     Indication: Prostate cancer
     Dosage: 45 MILLIGRAM, Q 6 MONTH
     Route: 058

REACTIONS (1)
  - Endocarditis [Recovered/Resolved]
